FAERS Safety Report 10770487 (Version 1)
Quarter: 2015Q1

REPORT INFORMATION
  Report Type: Spontaneous
  Country: JP (occurrence: JP)
  Receive Date: 20150206
  Receipt Date: 20150206
  Transmission Date: 20150721
  Serious: Yes (Hospitalization, Disabling)
  Sender: FDA-Public Use
  Company Number: JP-MERCK-1501JPN012215

PATIENT
  Age: 47 Year
  Sex: Male

DRUGS (40)
  1. TRIHEXYPHENIDYL HYDROCHLORIDE. [Concomitant]
     Active Substance: TRIHEXYPHENIDYL HYDROCHLORIDE
     Dosage: 3 MG, QD
  2. QUETIAPINE FUMARATE. [Concomitant]
     Active Substance: QUETIAPINE FUMARATE
     Dosage: 100 MG, QD
  3. BROMOCRIPTINE [Concomitant]
     Active Substance: BROMOCRIPTINE
     Dosage: 10 MG, QD
  4. BIPERIDEN [Concomitant]
     Active Substance: BIPERIDEN
     Dosage: 5 MG, QD
  5. CARBIDOPA (+) LEVODOPA [Suspect]
     Active Substance: CARBIDOPA\LEVODOPA
     Dosage: 300 MG, QD
     Route: 048
  6. TRIHEXYPHENIDYL HYDROCHLORIDE. [Concomitant]
     Active Substance: TRIHEXYPHENIDYL HYDROCHLORIDE
     Dosage: 6 MG, QD
  7. OLANZAPINE. [Concomitant]
     Active Substance: OLANZAPINE
     Dosage: 10 MG, QD
  8. CARBIDOPA (+) LEVODOPA [Suspect]
     Active Substance: CARBIDOPA\LEVODOPA
     Dosage: 400 MG, QD
     Route: 048
  9. CARBIDOPA (+) LEVODOPA [Suspect]
     Active Substance: CARBIDOPA\LEVODOPA
     Dosage: 350 MG, QD
     Route: 048
  10. PRAMIPEXOLE [Concomitant]
     Active Substance: PRAMIPEXOLE
     Dosage: 1.5 MG, QD
  11. OLANZAPINE. [Concomitant]
     Active Substance: OLANZAPINE
     Dosage: 20 MG, QD
  12. ROPINIROLE. [Concomitant]
     Active Substance: ROPINIROLE
     Dosage: 2 MG, QD
  13. ROPINIROLE. [Concomitant]
     Active Substance: ROPINIROLE
     Dosage: 6 MG, QD
  14. ROPINIROLE. [Concomitant]
     Active Substance: ROPINIROLE
     Dosage: 9 MG, QD
  15. YOKU-KAN-SAN [Concomitant]
     Dosage: 7500 MG, QD
  16. CARBIDOPA (+) LEVODOPA [Suspect]
     Active Substance: CARBIDOPA\LEVODOPA
     Dosage: 300 MG, QD
     Route: 048
  17. CARBIDOPA (+) LEVODOPA [Suspect]
     Active Substance: CARBIDOPA\LEVODOPA
     Dosage: 600 MG, QD
     Route: 048
  18. CARBIDOPA (+) LEVODOPA [Suspect]
     Active Substance: CARBIDOPA\LEVODOPA
     Dosage: 150 MG, QD
     Route: 048
  19. CARBIDOPA (+) LEVODOPA [Suspect]
     Active Substance: CARBIDOPA\LEVODOPA
     Dosage: 300 MG, QD
     Route: 048
  20. CABERGOLINE. [Concomitant]
     Active Substance: CABERGOLINE
     Dosage: 0.25 MG, QD
  21. LITHIUM [Concomitant]
     Active Substance: LITHIUM CARBONATE
     Dosage: 800 MG, QD
  22. CARBIDOPA (+) LEVODOPA [Suspect]
     Active Substance: CARBIDOPA\LEVODOPA
     Dosage: 600 MG, QD
     Route: 048
  23. TRIHEXYPHENIDYL HYDROCHLORIDE. [Concomitant]
     Active Substance: TRIHEXYPHENIDYL HYDROCHLORIDE
     Dosage: 8 MG, QD
  24. QUETIAPINE FUMARATE. [Concomitant]
     Active Substance: QUETIAPINE FUMARATE
     Dosage: 200 MG, QD
  25. QUETIAPINE FUMARATE. [Concomitant]
     Active Substance: QUETIAPINE FUMARATE
     Dosage: 150 MG, QD
  26. QUETIAPINE FUMARATE. [Concomitant]
     Active Substance: QUETIAPINE FUMARATE
     Dosage: 400 MG, QD
  27. QUETIAPINE FUMARATE. [Concomitant]
     Active Substance: QUETIAPINE FUMARATE
     Dosage: 600 MG, QD
  28. ROPINIROLE. [Concomitant]
     Active Substance: ROPINIROLE
     Dosage: 4 MG, QD
  29. TIMIPERONE [Concomitant]
     Active Substance: TIMIPERONE
     Dosage: 12 MG, QD
     Route: 042
  30. QUETIAPINE FUMARATE. [Concomitant]
     Active Substance: QUETIAPINE FUMARATE
     Dosage: 300 MG, QD
  31. ROPINIROLE. [Concomitant]
     Active Substance: ROPINIROLE
     Dosage: 12 MG, QD
  32. ROPINIROLE. [Concomitant]
     Active Substance: ROPINIROLE
     Dosage: 6 MG, QD
  33. CARBIDOPA (+) LEVODOPA [Suspect]
     Active Substance: CARBIDOPA\LEVODOPA
     Dosage: 800 MG, QD
     Route: 048
  34. CARBIDOPA (+) LEVODOPA [Suspect]
     Active Substance: CARBIDOPA\LEVODOPA
     Dosage: 300 MG, QD
     Route: 048
  35. PRAMIPEXOLE [Concomitant]
     Active Substance: PRAMIPEXOLE
     Dosage: 4 MG, QD
  36. PERGOLIDE [Concomitant]
     Active Substance: PERGOLIDE
     Dosage: 0.5 MG, QD
  37. TRIHEXYPHENIDYL HYDROCHLORIDE. [Concomitant]
     Active Substance: TRIHEXYPHENIDYL HYDROCHLORIDE
     Dosage: 4 MG, QD
  38. CARBIDOPA (+) LEVODOPA [Suspect]
     Active Substance: CARBIDOPA\LEVODOPA
     Indication: PARKINSON^S DISEASE
     Dosage: 400 MG, QD
     Route: 048
  39. CARBIDOPA (+) LEVODOPA [Suspect]
     Active Substance: CARBIDOPA\LEVODOPA
     Dosage: 600 MG, QD
     Route: 048
  40. FLUPHENAZINE [Concomitant]
     Active Substance: FLUPHENAZINE
     Dosage: 12.5 MG, EVERY 4 WEEKS

REACTIONS (9)
  - Hallucination, auditory [Recovering/Resolving]
  - Emotional disorder [Recovering/Resolving]
  - Gait disturbance [Recovering/Resolving]
  - Thinking abnormal [Recovering/Resolving]
  - Bradykinesia [Recovering/Resolving]
  - Muscle rigidity [Recovering/Resolving]
  - Pathological gambling [Recovering/Resolving]
  - Delusion [Recovering/Resolving]
  - Hallucination, visual [Recovering/Resolving]
